FAERS Safety Report 19218407 (Version 1)
Quarter: 2021Q2

REPORT INFORMATION
  Report Type: Spontaneous
  Country: US (occurrence: US)
  Receive Date: 20210505
  Receipt Date: 20210505
  Transmission Date: 20210717
  Serious: No
  Sender: FDA-Public Use
  Company Number: US-ASTRAZENECA-2020SE39031

PATIENT
  Age: 27195 Day
  Sex: Male
  Weight: 113.8 kg

DRUGS (29)
  1. FOLIC ACID. [Concomitant]
     Active Substance: FOLIC ACID
  2. FUROSEMIDE. [Concomitant]
     Active Substance: FUROSEMIDE
  3. VITAMIN C [Concomitant]
     Active Substance: ASCORBIC ACID
  4. ISOSORBIDE. [Concomitant]
     Active Substance: ISOSORBIDE
  5. FERROUS [Concomitant]
     Active Substance: IRON
  6. PSEUDOEPHEDRINE. [Concomitant]
     Active Substance: PSEUDOEPHEDRINE HYDROCHLORIDE
  7. TRIAMCINOLONE [Concomitant]
     Active Substance: TRIAMCINOLONE
     Route: 045
  8. CLOPIDOGREL [Concomitant]
     Active Substance: CLOPIDOGREL BISULFATE
  9. DEXTROMETHORPHAN [Concomitant]
     Active Substance: DEXTROMETHORPHAN
  10. AMLODIPINE [Concomitant]
     Active Substance: AMLODIPINE BESYLATE
  11. CARVEDILOL. [Concomitant]
     Active Substance: CARVEDILOL
  12. CARISOPRODOL. [Concomitant]
     Active Substance: CARISOPRODOL
  13. LOSARTAN. [Concomitant]
     Active Substance: LOSARTAN
  14. NASALCROM [Concomitant]
     Active Substance: CROMOLYN SODIUM
  15. TUDORZA PRESSAIR [Suspect]
     Active Substance: ACLIDINIUM BROMIDE
     Indication: EMPHYSEMA
     Route: 055
  16. EZETIMIBE. [Concomitant]
     Active Substance: EZETIMIBE
  17. SUCRALFATE. [Concomitant]
     Active Substance: SUCRALFATE
  18. TUDORZA PRESSAIR [Suspect]
     Active Substance: ACLIDINIUM BROMIDE
     Indication: EMPHYSEMA
     Route: 055
     Dates: start: 20200228
  19. ASPIRIN. [Concomitant]
     Active Substance: ASPIRIN
  20. MIRALAX [Concomitant]
     Active Substance: POLYETHYLENE GLYCOL 3350
  21. TUDORZA PRESSAIR [Suspect]
     Active Substance: ACLIDINIUM BROMIDE
     Indication: EMPHYSEMA
     Dosage: 400.0UG UNKNOWN
     Route: 055
  22. METOPROLOL. [Concomitant]
     Active Substance: METOPROLOL
  23. PANTOPRAZOLE [Concomitant]
     Active Substance: PANTOPRAZOLE
  24. WARFARIN [Concomitant]
     Active Substance: WARFARIN
  25. METHOTREXATE. [Concomitant]
     Active Substance: METHOTREXATE
  26. IBUPROFEN. [Concomitant]
     Active Substance: IBUPROFEN
  27. ZICAM [Concomitant]
  28. NASACORT [Concomitant]
     Active Substance: TRIAMCINOLONE ACETONIDE
  29. CALCIUM, VITAMIN D [Concomitant]

REACTIONS (3)
  - Off label use [Not Recovered/Not Resolved]
  - Device issue [Unknown]
  - Dyspnoea [Recovered/Resolved]

NARRATIVE: CASE EVENT DATE: 20200228
